FAERS Safety Report 23737119 (Version 2)
Quarter: 2024Q2

REPORT INFORMATION
  Report Type: Spontaneous
  Country: US (occurrence: US)
  Receive Date: 20240412
  Receipt Date: 20240422
  Transmission Date: 20240716
  Serious: Yes (Other)
  Sender: FDA-Public Use
  Company Number: US-ELI_LILLY_AND_COMPANY-US202404006235

PATIENT
  Age: 81 Year
  Sex: Female

DRUGS (3)
  1. HUMULIN N [Suspect]
     Active Substance: INSULIN HUMAN
     Indication: Product used for unknown indication
     Dosage: 5 U, UNKNOWN
     Route: 065
  2. HUMULIN N [Suspect]
     Active Substance: INSULIN HUMAN
     Dosage: 5 U, UNKNOWN
     Route: 065
  3. HUMULIN N [Suspect]
     Active Substance: INSULIN HUMAN
     Dosage: 5 U, UNKNOWN
     Route: 065

REACTIONS (11)
  - Renal cancer [Recovered/Resolved]
  - Hypertension [Unknown]
  - Blood cholesterol increased [Unknown]
  - Overweight [Recovering/Resolving]
  - Vision blurred [Unknown]
  - Fatigue [Unknown]
  - Nervousness [Unknown]
  - Blood glucose increased [Recovering/Resolving]
  - Expired product administered [Unknown]
  - Feeling abnormal [Unknown]
  - Visual impairment [Unknown]

NARRATIVE: CASE EVENT DATE: 20120101
